FAERS Safety Report 4907323-8 (Version None)
Quarter: 2006Q1

REPORT INFORMATION
  Report Type: 
  Country: None (occurrence: None)
  Receive Date: 20060207
  Receipt Date: 20060127
  Transmission Date: 20060701
  Serious: Yes (Hospitalization, Other)
  Sender: FDA-Public Use
  Company Number: KII-2006-0020989

PATIENT
  Age: 38 Year
  Sex: Male
  Weight: 165.1 kg

DRUGS (3)
  1. OXYCONTIN [Suspect]
     Dosage: Q12H, ORAL
     Route: 048
  2. ACETAMINOPHEN AND OXYCODONE HCL [Suspect]
     Dosage: Q4H PRN, ORAL
     Route: 048
  3. BENZODIAZEPINE DERIVATIVES () [Suspect]

REACTIONS (12)
  - BLOOD POTASSIUM DECREASED [None]
  - COMA [None]
  - CONFUSIONAL STATE [None]
  - DRUG SCREEN POSITIVE [None]
  - FLAT AFFECT [None]
  - HYPERTHERMIA MALIGNANT [None]
  - LABORATORY TEST ABNORMAL [None]
  - LETHARGY [None]
  - OVERDOSE [None]
  - OXYGEN SATURATION DECREASED [None]
  - PNEUMONIA ASPIRATION [None]
  - RESPIRATORY RATE INCREASED [None]
